FAERS Safety Report 9963840 (Version 1)
Quarter: 2014Q1

REPORT INFORMATION
  Report Type: Report from Study
  Country: US (occurrence: US)
  Receive Date: 20140305
  Receipt Date: 20140305
  Transmission Date: 20141002
  Serious: Yes (Other)
  Sender: FDA-Public Use
  Company Number: PHHY2011US119166

PATIENT
  Age: 71 Year
  Sex: Male

DRUGS (54)
  1. LUCENTIS [Suspect]
     Indication: AGE-RELATED MACULAR DEGENERATION
     Dosage: 0.5 MG, QMO
     Route: 031
     Dates: start: 20091013
  2. LUCENTIS [Suspect]
     Dosage: 0.5 MG, QMO
     Route: 031
     Dates: start: 20091124
  3. LUCENTIS [Suspect]
     Dosage: 0.5 MG, QMO
     Route: 031
     Dates: start: 20091222
  4. LUCENTIS [Suspect]
     Dosage: 0.5 MG, QMO
     Route: 031
     Dates: start: 20100202
  5. LUCENTIS [Suspect]
     Dosage: 0.5 MG, QMO
     Route: 031
     Dates: start: 20100316
  6. LUCENTIS [Suspect]
     Dosage: 0.5 MG, QMO
     Route: 031
     Dates: start: 20100505
  7. LUCENTIS [Suspect]
     Dosage: 0.5 MG, QMO
     Route: 031
     Dates: start: 20100614
  8. LUCENTIS [Suspect]
     Dosage: 0.5 MG, QMO
     Route: 031
     Dates: start: 20100818
  9. LUCENTIS [Suspect]
     Dosage: 0.5 MG, QMO
     Route: 031
     Dates: start: 20100928
  10. LUCENTIS [Suspect]
     Dosage: 0.5 MG, QMO
     Route: 031
     Dates: start: 20101022
  11. LUCENTIS [Suspect]
     Dosage: 0.5 MG, QMO
     Route: 031
     Dates: start: 20101215
  12. LUCENTIS [Suspect]
     Dosage: 0.5 MG, QMO
     Route: 031
     Dates: start: 20110119
  13. LUCENTIS [Suspect]
     Dosage: 0.5 MG, QMO
     Route: 031
     Dates: start: 20110216
  14. LUCENTIS [Suspect]
     Dosage: 0.5 MG, QMO
     Route: 031
     Dates: start: 20110524
  15. LUCENTIS [Suspect]
     Dosage: 0.5 MG, QMO
     Route: 031
     Dates: start: 20110706
  16. LUCENTIS [Suspect]
     Dosage: 0.5 MG, QMO
     Route: 031
     Dates: start: 20110817
  17. LUCENTIS [Suspect]
     Dosage: 0.5 MG, QMO
     Route: 031
     Dates: start: 20110921
  18. AVASTIN [Suspect]
     Indication: AGE-RELATED MACULAR DEGENERATION
     Dosage: 2.5 MG, (DOUBLE DOSE)
     Route: 031
     Dates: start: 20080327
  19. AVASTIN [Suspect]
     Dosage: 2.5 MG, (DOUBLE DOSE)
     Route: 031
     Dates: start: 20080429
  20. AVASTIN [Suspect]
     Dosage: 2.5 MG, (DOUBLE DOSE)
     Route: 031
     Dates: start: 20080519
  21. AVASTIN [Suspect]
     Dosage: 2.5 MG, (DOUBLE DOSE)
     Route: 031
     Dates: start: 20080624
  22. AVASTIN [Suspect]
     Dosage: 2.5 MG, (DOUBLE DOSE)
     Route: 031
     Dates: start: 20081028
  23. AVASTIN [Suspect]
     Dosage: 2.5 MG, (DOUBLE DOSE)
     Route: 031
     Dates: start: 20081209
  24. AVASTIN [Suspect]
     Dosage: 2.5 MG, (DOUBLE DOSE)
     Route: 031
     Dates: start: 20090120
  25. AVASTIN [Suspect]
     Dosage: 2.5 MG, (DOUBLE DOSE)
     Route: 031
     Dates: start: 20090203
  26. AVASTIN [Suspect]
     Dosage: 2.5 MG, (DOUBLE DOSE)
     Route: 031
     Dates: start: 20090316
  27. AVASTIN [Suspect]
     Dosage: 2.5 MG, (DOUBLE DOSE)
     Route: 031
     Dates: start: 20090415
  28. AVASTIN [Suspect]
     Dosage: 2.5 MG, (DOUBLE DOSE)
     Route: 031
     Dates: start: 20090609
  29. AVASTIN [Suspect]
     Dosage: 2.5 MG, (DOUBLE DOSE)
     Route: 031
     Dates: start: 20090721
  30. AVASTIN [Suspect]
     Dosage: 2.5 MG, (DOUBLE DOSE)
     Route: 031
     Dates: start: 20090901
  31. AVASTIN [Suspect]
     Dosage: 2.5 MG, (DOUBLE DOSE)
     Route: 031
     Dates: start: 20110329
  32. AVASTIN [Suspect]
     Dosage: 2.5 MG, (DOUBLE DOSE)
     Route: 031
     Dates: start: 20110426
  33. AVASTIN [Suspect]
     Dosage: 2.5 MG, (DOUBLE DOSE)
     Route: 031
     Dates: start: 20111019
  34. AVASTIN [Suspect]
     Dosage: 2.5 MG, (DOUBLE DOSE)
     Route: 031
     Dates: start: 20111116
  35. AVASTIN [Suspect]
     Dosage: 2.5 MG, (DOUBLE DOSE)
     Route: 031
     Dates: start: 20111207
  36. DIPHENHYDRAMINE HYDROCHLORIDE [Suspect]
     Dosage: UNK UKN, UNK
  37. AMLODIPINE [Concomitant]
     Dosage: UNK UKN, UNK
  38. ASPIRIN [Concomitant]
     Dosage: 81 MG, UNK
  39. ENALAPRIL MALEATE [Concomitant]
     Dosage: UNK UKN, UNK
  40. GEMFIBROZIL [Concomitant]
     Dosage: UNK UKN, UNK
  41. HYDROCHLOROTHIAZIDE [Concomitant]
     Dosage: UNK UKN, UNK
  42. MELATONIN [Concomitant]
     Indication: AGE-RELATED MACULAR DEGENERATION
     Dosage: UNK UKN, UNK
  43. METFORMIN HYDROCHLORIDE [Concomitant]
     Dosage: UNK UKN, UNK
  44. OMEPRAZOLE [Concomitant]
     Dosage: UNK UKN, UNK
  45. PRESERVISION AREDS [Concomitant]
     Dosage: UNK UKN, UNK
  46. SELENIUM SULFIDE [Concomitant]
     Dosage: UNK UKN, UNK
  47. SIMVASTATIN [Concomitant]
     Dosage: UNK UKN, UNK
  48. TYLENOL ARTHRITIS [Concomitant]
     Dosage: UNK UKN, UNK
  49. FISH OIL [Concomitant]
     Dosage: UNK UKN, UNK
  50. VITAMIN A [Concomitant]
     Dosage: UNK UKN, UNK
  51. WARFARIN SODIUM [Concomitant]
     Dosage: UNK UKN, UNK
  52. XYLOCAINE [Concomitant]
     Dosage: 4 %, UNK
  53. BETADINE [Concomitant]
     Dosage: UNK UKN, UNK
     Route: 047
  54. MYDRIACYL [Concomitant]
     Dosage: 1 %, UNK

REACTIONS (10)
  - Detachment of retinal pigment epithelium [Unknown]
  - Lacrimation decreased [Unknown]
  - Cutis laxa [Unknown]
  - Macular degeneration [Unknown]
  - Off label use [Unknown]
  - Cataract nuclear [Unknown]
  - Visual acuity reduced [Unknown]
  - Retinal haemorrhage [Unknown]
  - Vitreous detachment [Unknown]
  - Retinal pigment epithelial tear [Unknown]
